FAERS Safety Report 18766876 (Version 1)
Quarter: 2021Q1

REPORT INFORMATION
  Report Type: Spontaneous
  Country: ES (occurrence: ES)
  Receive Date: 20210121
  Receipt Date: 20210121
  Transmission Date: 20210419
  Serious: Yes (Other)
  Sender: FDA-Public Use
  Company Number: ES-ACCORD-215128

PATIENT
  Age: 86 Year
  Sex: Female

DRUGS (9)
  1. TRAZODONE [Suspect]
     Active Substance: TRAZODONE HYDROCHLORIDE
     Indication: PRODUCT USED FOR UNKNOWN INDICATION
     Route: 048
     Dates: start: 20201117, end: 20201129
  2. INSUCOR [Concomitant]
     Dosage: 2.5 MG TABLETS, 28 TABLETS (PVC?PVDC?ALUMINUM BLISTER)
     Route: 048
     Dates: start: 20200723
  3. FUROSEMIDE ALTER [Concomitant]
     Dosage: 40 MG EFG TABLETS, 30 TABLETS
     Route: 048
     Dates: start: 20191106
  4. QUETIAPINE KERN PHARMA [Concomitant]
     Dosage: 25 MG EFG FILM?COATED TABLETS, 60 TABLETS
     Route: 048
     Dates: start: 20201110
  5. DONEPEZIL TARBIS [Concomitant]
     Dosage: 5 MG FILM?COATED TABLETS EFG, 28 TABLETS
     Route: 048
     Dates: start: 20201117
  6. METFORMIN KERN PHARMA [Concomitant]
     Dosage: 850 MG EFG FILM?COATED TABLETS, 50 TABLETS
     Route: 048
     Dates: start: 20120523
  7. OMEPRAZOL DAVUR [Concomitant]
     Dosage: 20 MG HARD GASTRO?RESISTANT CAPSULES EFG, 28 CAPSULES
     Route: 048
     Dates: start: 20120507
  8. ELIQUIS [Concomitant]
     Active Substance: APIXABAN
     Dosage: 5 MG FILM?COATED TABLET, 60 TABLETS
     Route: 048
     Dates: start: 20200203
  9. ZALDIAR [Concomitant]
     Active Substance: ACETAMINOPHEN\TRAMADOL HYDROCHLORIDE
     Dosage: 37.5 MG / 325 MG FILM?COATED TABLETS, 60 TABLETS
     Route: 048
     Dates: start: 20190729

REACTIONS (1)
  - Angioedema [Recovered/Resolved]

NARRATIVE: CASE EVENT DATE: 20201129
